FAERS Safety Report 6099874-0 (Version None)
Quarter: 2009Q1

REPORT INFORMATION
  Report Type: 
  Country: None (occurrence: None)
  Receive Date: 20090303
  Receipt Date: 20090227
  Transmission Date: 20090719
  Serious: Yes (Death, Other)
  Sender: FDA-Public Use
  Company Number: PHHY2009BR07149

PATIENT
  Age: 91 Year
  Sex: Female

DRUGS (5)
  1. DIOVAN [Suspect]
     Indication: CARDIAC DISORDER
     Dosage: 1 TABLET IN THE MORNING
     Route: 048
  2. GINKGO BILOBA [Concomitant]
     Dosage: 1 TABLET IN THE MORNING
     Route: 048
  3. NORFLOXACIN [Concomitant]
     Indication: URINARY TRACT INFECTION
     Route: 048
  4. ASCORBIC ACID [Concomitant]
  5. EPAREMA [Concomitant]

REACTIONS (1)
  - CARDIO-RESPIRATORY ARREST [None]
